FAERS Safety Report 10774724 (Version 1)
Quarter: 2015Q1

REPORT INFORMATION
  Report Type: Spontaneous
  Country: US (occurrence: None)
  Receive Date: 20150206
  Receipt Date: 20150206
  Transmission Date: 20150721
  Serious: No
  Sender: FDA-Public Use
  Company Number: HYP201308-000047

PATIENT
  Age: 26 Year
  Sex: Female

DRUGS (5)
  1. SODIUM BENZOATE [Concomitant]
     Active Substance: SODIUM BENZOATE
  2. ATIVAN [Concomitant]
     Active Substance: LORAZEPAM
  3. CETRIZINE [Concomitant]
     Active Substance: CETIRIZINE HYDROCHLORIDE
  4. RAVICTI [Suspect]
     Active Substance: GLYCEROL PHENYLBUTYRATE
     Indication: UREA CYCLE ENZYME DEFICIENCY
     Route: 048
     Dates: start: 20130815, end: 20130817
  5. ZOLOFT [Concomitant]
     Active Substance: SERTRALINE HYDROCHLORIDE

REACTIONS (5)
  - Restlessness [None]
  - Headache [None]
  - Feeling abnormal [None]
  - Chest discomfort [None]
  - Paraesthesia [None]

NARRATIVE: CASE EVENT DATE: 20130817
